FAERS Safety Report 11281040 (Version 1)
Quarter: 2015Q3

REPORT INFORMATION
  Report Type: Spontaneous
  Country: US (occurrence: US)
  Receive Date: 20150717
  Receipt Date: 20150717
  Transmission Date: 20151125
  Serious: Yes (Hospitalization)
  Sender: FDA-Public Use
  Company Number: US-APOTEX-2015AP010467

PATIENT

DRUGS (2)
  1. PHENOBARBITAL. [Concomitant]
     Active Substance: PHENOBARBITAL
     Indication: STATUS EPILEPTICUS
     Route: 065
  2. FOSPHENYTOIN SODIUM INJECTION USP (FOSPHENYTOIN) INJECTIONRN [Suspect]
     Active Substance: FOSPHENYTOIN SODIUM
     Indication: STATUS EPILEPTICUS
     Route: 065

REACTIONS (2)
  - Coma [Recovering/Resolving]
  - Toxicity to various agents [Recovered/Resolved]
